FAERS Safety Report 7011866-3 (Version None)
Quarter: 2010Q3

REPORT INFORMATION
  Report Type: 
  Country: None (occurrence: None)
  Receive Date: 20100924
  Receipt Date: 20100914
  Transmission Date: 20110219
  Serious: Yes (Hospitalization)
  Sender: FDA-Public Use
  Company Number: US-ASTRAZENECA-2010SE43085

PATIENT
  Age: 66 Year
  Sex: Male
  Weight: 86.2 kg

DRUGS (9)
  1. CRESTOR [Suspect]
     Route: 048
  2. FLOMAX [Concomitant]
  3. GABAPENTIN [Concomitant]
  4. NABUMETONE [Concomitant]
  5. TRAMADOL [Concomitant]
  6. FIBER CON [Concomitant]
  7. STOOL SOFTENER [Concomitant]
  8. COLON HEALTH [Concomitant]
  9. BELLA ALK/PB [Concomitant]

REACTIONS (2)
  - HIGH DENSITY LIPOPROTEIN DECREASED [None]
  - KNEE OPERATION [None]
